FAERS Safety Report 9228894 (Version 5)
Quarter: 2014Q3

REPORT INFORMATION
  Report Type: Spontaneous
  Country: US (occurrence: US)
  Receive Date: 20130412
  Receipt Date: 20140908
  Transmission Date: 20150326
  Serious: Yes (Disabling)
  Sender: FDA-Public Use
  Company Number: US-009507513-1304USA004749

PATIENT
  Sex: Male
  Weight: 79.82 kg

DRUGS (3)
  1. PROPECIA [Suspect]
     Active Substance: FINASTERIDE
     Indication: ANDROGENETIC ALOPECIA
     Dosage: 1 MG, QD
     Route: 048
     Dates: start: 20110712, end: 20111024
  2. FINASTERIDE. [Suspect]
     Active Substance: FINASTERIDE
     Indication: PRODUCT USED FOR UNKNOWN INDICATION
     Dosage: 5 MG, 1/5 TAB QD
     Route: 048
     Dates: start: 20111129, end: 20120229
  3. PROSCAR [Suspect]
     Active Substance: FINASTERIDE
     Indication: BENIGN PROSTATIC HYPERPLASIA
     Dosage: 5 MG, UNK
     Route: 048
     Dates: start: 2011

REACTIONS (15)
  - Anorgasmia [Unknown]
  - Dizziness [Unknown]
  - Breast enlargement [Unknown]
  - Emotional distress [Unknown]
  - Viral infection [Unknown]
  - Sexual dysfunction [Unknown]
  - Wrong technique in drug usage process [Unknown]
  - Erectile dysfunction [Unknown]
  - Sensory loss [Unknown]
  - Viral infection [Unknown]
  - Viral infection [Unknown]
  - Ejaculation disorder [Unknown]
  - Loss of libido [Unknown]
  - Anxiety [Unknown]
  - Libido decreased [Unknown]

NARRATIVE: CASE EVENT DATE: 20110120
